FAERS Safety Report 18916806 (Version 2)
Quarter: 2021Q2

REPORT INFORMATION
  Report Type: Report from Study
  Country: MX (occurrence: MX)
  Receive Date: 20210219
  Receipt Date: 20210602
  Transmission Date: 20210717
  Serious: Yes (Hospitalization, Other)
  Sender: FDA-Public Use
  Company Number: NVSC2021MX037010

PATIENT
  Age: 72 Year
  Sex: Female
  Weight: 67 kg

DRUGS (2)
  1. LYRICA [Concomitant]
     Active Substance: PREGABALIN
     Indication: BLADDER NECK OBSTRUCTION
     Dosage: 75 MG, BID (2 OF 75 MG,1 TABLET IN MORNING + 1 TABLET AT NIGHT)
     Route: 048
     Dates: start: 202010
  2. ULTIBRO BREEZHALER [Suspect]
     Active Substance: GLYCOPYRRONIUM\INDACATEROL
     Indication: BRONCHIAL DISORDER
     Dosage: UNK, 1 OF 110/50 MG, EVERY 48 HOURS
     Route: 055
     Dates: start: 20201117, end: 20210206

REACTIONS (4)
  - Typhoid fever [Unknown]
  - Appendicitis [Unknown]
  - Off label use [Unknown]
  - Illness [Unknown]

NARRATIVE: CASE EVENT DATE: 202101
